FAERS Safety Report 7094254-3 (Version None)
Quarter: 2010Q4

REPORT INFORMATION
  Report Type: 
  Country: None (occurrence: None)
  Receive Date: 20101110
  Receipt Date: 20101105
  Transmission Date: 20110411
  Serious: Yes (Hospitalization)
  Sender: FDA-Public Use
  Company Number: IT-PFIZER INC-2010133911

PATIENT
  Age: 70 Year
  Sex: Female

DRUGS (4)
  1. ARACYTIN [Suspect]
     Indication: ACUTE MYELOID LEUKAEMIA
     Dosage: 360 MG, DAILY
     Route: 042
     Dates: start: 20100911
  2. ZAVEDOS [Suspect]
     Indication: ACUTE MYELOID LEUKAEMIA
     Dosage: 18 MG, DAILY
     Route: 042
     Dates: start: 20100915
  3. PIPERACILLIN AND TAZOBACTAM [Concomitant]
     Indication: SEPSIS
     Dosage: 3 UNIT DOSE
     Route: 042
     Dates: start: 20100910, end: 20100928
  4. CHEMACIN [Concomitant]
     Indication: SEPSIS
     Dosage: 2 UNIT DOSE
     Route: 042
     Dates: start: 20100910, end: 20100928

REACTIONS (2)
  - SKIN EXFOLIATION [None]
  - VASCULAR PURPURA [None]
